FAERS Safety Report 4519144-9 (Version None)
Quarter: 2004Q4

REPORT INFORMATION
  Report Type: 
  Country: None (occurrence: None)
  Receive Date: 20041206
  Receipt Date: 20041129
  Transmission Date: 20050328
  Serious: Yes (Hospitalization)
  Sender: FDA-Public Use
  Company Number: US-JNJFOC-20041200316

PATIENT
  Sex: Female

DRUGS (5)
  1. DURAGESIC [Suspect]
     Route: 062
     Dates: start: 20041108, end: 20041123
  2. DURAGESIC [Suspect]
     Indication: CANCER PAIN
     Route: 062
     Dates: start: 20041108, end: 20041123
  3. ISOPHANE INSULIN [Concomitant]
     Dosage: X 30 YEARS
     Route: 058
  4. PROZAC [Concomitant]
     Indication: DEPRESSION
     Route: 049
  5. RESTORIL [Concomitant]
     Dosage: AT BEDTIME 3 TO 4 TIMES A MONTH
     Route: 049
     Dates: start: 20040601, end: 20041122

REACTIONS (6)
  - BLOOD GLUCOSE ABNORMAL [None]
  - BLOOD GLUCOSE DECREASED [None]
  - BRAIN DAMAGE [None]
  - COMA [None]
  - CONVULSION [None]
  - DRUG INEFFECTIVE [None]
